FAERS Safety Report 22328788 (Version 1)
Quarter: 2023Q2

REPORT INFORMATION
  Report Type: Spontaneous
  Country: US (occurrence: US)
  Receive Date: 20230517
  Receipt Date: 20230517
  Transmission Date: 20230722
  Serious: No
  Sender: FDA-Public Use
  Company Number: US-RADIUS HEALTH INC.-2022US006119

PATIENT
  Age: 59 Year
  Sex: Female

DRUGS (7)
  1. TYMLOS [Suspect]
     Active Substance: ABALOPARATIDE
     Indication: Senile osteoporosis
     Dosage: 80 MICROGRAM, QD
     Route: 058
     Dates: start: 202212, end: 202302
  2. TYMLOS [Suspect]
     Active Substance: ABALOPARATIDE
     Dosage: 40MCG QD
     Route: 058
  3. TYMLOS [Suspect]
     Active Substance: ABALOPARATIDE
     Dosage: 30MCG QD
  4. TYLENOL [Concomitant]
     Active Substance: ACETAMINOPHEN
     Indication: Headache
  5. TYLENOL [Concomitant]
     Active Substance: ACETAMINOPHEN
     Indication: Migraine
  6. ADVIL [Concomitant]
     Active Substance: IBUPROFEN
     Indication: Headache
  7. ADVIL [Concomitant]
     Active Substance: IBUPROFEN
     Indication: Migraine

REACTIONS (13)
  - Anxiety [Unknown]
  - Head discomfort [Recovering/Resolving]
  - Feeling jittery [Unknown]
  - Oxygen saturation decreased [Recovered/Resolved]
  - Loss of personal independence in daily activities [Recovering/Resolving]
  - Diaphragmatic disorder [Unknown]
  - Myalgia [Unknown]
  - Fatigue [Unknown]
  - Bone pain [Unknown]
  - Headache [Not Recovered/Not Resolved]
  - Dyspnoea [Unknown]
  - Bone pain [Unknown]
  - Intentional product misuse [Unknown]

NARRATIVE: CASE EVENT DATE: 20221220
